FAERS Safety Report 13571494 (Version 1)
Quarter: 2017Q2

REPORT INFORMATION
  Report Type: Spontaneous
  Country: PL (occurrence: PL)
  Receive Date: 20170523
  Receipt Date: 20170523
  Transmission Date: 20170830
  Serious: Yes (Death)
  Sender: FDA-Public Use
  Company Number: PHHY2017PL069599

PATIENT
  Sex: Male

DRUGS (1)
  1. DECILOSAL [Suspect]
     Active Substance: CILOSTAZOL
     Indication: DIABETIC FOOT
     Dosage: 100 MG, UNK
     Route: 048
     Dates: start: 201605

REACTIONS (3)
  - Rash [Fatal]
  - Diarrhoea [Fatal]
  - Circulatory collapse [Fatal]

NARRATIVE: CASE EVENT DATE: 201609
